FAERS Safety Report 9476705 (Version 3)
Quarter: 2013Q3

REPORT INFORMATION
  Report Type: Spontaneous
  Country: US (occurrence: US)
  Receive Date: 20130826
  Receipt Date: 20130926
  Transmission Date: 20140515
  Serious: No
  Sender: FDA-Public Use
  Company Number: US-TEVA-428319USA

PATIENT
  Age: 30 Year
  Sex: Female
  Weight: 58.57 kg

DRUGS (1)
  1. PARAGARD 380A [Suspect]
     Indication: CONTRACEPTION
     Route: 015
     Dates: start: 20130312, end: 20130820

REACTIONS (5)
  - Device expulsion [Recovered/Resolved]
  - Medical device complication [Recovered/Resolved]
  - Product quality issue [Unknown]
  - Dyspareunia [Unknown]
  - Metrorrhagia [Unknown]
